FAERS Safety Report 23633302 (Version 1)
Quarter: 2024Q1

REPORT INFORMATION
  Report Type: Spontaneous
  Country: IL (occurrence: IL)
  Receive Date: 20240314
  Receipt Date: 20240314
  Transmission Date: 20240409
  Serious: Yes (Other)
  Sender: FDA-Public Use
  Company Number: IL-BAYER-2024A036787

PATIENT
  Age: 3 Year
  Sex: Female
  Weight: 13 kg

DRUGS (4)
  1. XARELTO [Suspect]
     Active Substance: RIVAROXABAN
     Indication: Cerebral venous sinus thrombosis
     Dosage: 5 MG, BID
     Route: 048
     Dates: start: 20230314
  2. XARELTO [Suspect]
     Active Substance: RIVAROXABAN
     Indication: Cerebral venous sinus thrombosis
     Dosage: 2.5 MG, BID
     Route: 048
     Dates: start: 20230724
  3. XARELTO [Suspect]
     Active Substance: RIVAROXABAN
     Indication: Cerebral venous sinus thrombosis
     Dosage: 2.5 MG, QD
     Route: 048
     Dates: start: 202312, end: 20240114
  4. IMATINIB [Concomitant]
     Active Substance: IMATINIB

REACTIONS (4)
  - Thrombocytopenia [Unknown]
  - Off label use [Unknown]
  - Platelet count decreased [Unknown]
  - Wrong technique in product usage process [Unknown]

NARRATIVE: CASE EVENT DATE: 20230314
